FAERS Safety Report 11871482 (Version 1)
Quarter: 2015Q4

REPORT INFORMATION
  Report Type: Spontaneous
  Country: BR (occurrence: BR)
  Receive Date: 20151228
  Receipt Date: 20151228
  Transmission Date: 20160305
  Serious: Yes (Other)
  Sender: FDA-Public Use
  Company Number: BR-PFIZER INC-2015461693

PATIENT
  Age: 72 Year
  Sex: Female

DRUGS (3)
  1. GLUCOSE [Concomitant]
     Active Substance: DEXTROSE
     Indication: GLUCOSE TOLERANCE IMPAIRED
     Dosage: 1 TABLET PER DAY
     Route: 048
     Dates: start: 2014
  2. LEVOID [Concomitant]
     Active Substance: LEVOTHYROXINE
     Indication: THYROID DISORDER
     Dosage: 1 TABLET PER DAY
     Route: 048
     Dates: start: 2014
  3. LYRICA [Suspect]
     Active Substance: PREGABALIN
     Indication: INFLAMMATION
     Dosage: 75 MG EVERY 12 HOURS
     Route: 048
     Dates: start: 201506, end: 201509

REACTIONS (3)
  - Lymphoma [Unknown]
  - Inguinal hernia [Unknown]
  - Product use issue [Unknown]

NARRATIVE: CASE EVENT DATE: 2015
